FAERS Safety Report 19304166 (Version 1)
Quarter: 2021Q2

REPORT INFORMATION
  Report Type: Spontaneous
  Country: TW (occurrence: TW)
  Receive Date: 20210526
  Receipt Date: 20210526
  Transmission Date: 20210717
  Serious: Yes (Hospitalization)
  Sender: FDA-Public Use
  Company Number: TW-ABBVIE-21K-153-3916309-00

PATIENT
  Age: 92 Year
  Sex: Male
  Weight: 46.9 kg

DRUGS (15)
  1. HUMIRA [Suspect]
     Active Substance: ADALIMUMAB
     Indication: RHEUMATOID ARTHRITIS
     Route: 058
     Dates: start: 20170331, end: 20210331
  2. MOPRIDE [Concomitant]
     Indication: GASTROINTESTINAL DISORDER
     Route: 048
     Dates: start: 20210402, end: 20210421
  3. TAKEPRON [Concomitant]
     Active Substance: LANSOPRAZOLE
     Indication: GASTROINTESTINAL DISORDER
     Route: 048
     Dates: start: 20210403, end: 20210421
  4. ANXIEDIN [Concomitant]
     Indication: SEDATIVE THERAPY
     Route: 048
     Dates: start: 20210402, end: 20210407
  5. ANXIEDIN [Concomitant]
     Indication: SEDATIVE THERAPY
  6. BISOPROLOL [Concomitant]
     Active Substance: BISOPROLOL
     Indication: CARDIOVASCULAR DISORDER
     Route: 048
     Dates: start: 20210412, end: 20210421
  7. ECON [Concomitant]
     Indication: GASTROINTESTINAL DISORDER
     Route: 048
     Dates: start: 20210402, end: 20210421
  8. MAGNESIUM OXIDE. [Concomitant]
     Active Substance: MAGNESIUM OXIDE
     Indication: CONSTIPATION PROPHYLAXIS
     Route: 048
     Dates: start: 20210402, end: 20210413
  9. ELIQUIS [Concomitant]
     Active Substance: APIXABAN
     Indication: CARDIOVASCULAR DISORDER
     Route: 048
     Dates: start: 20210412, end: 20210421
  10. UTAPINE [Concomitant]
     Indication: SEDATIVE THERAPY
  11. URIEF [Concomitant]
     Active Substance: SILODOSIN
     Indication: BENIGN PROSTATIC HYPERPLASIA
     Route: 048
     Dates: start: 20210406, end: 20210421
  12. BETHANECHOL [Concomitant]
     Active Substance: BETHANECHOL
     Indication: BENIGN PROSTATIC HYPERPLASIA
     Route: 048
     Dates: start: 20210413, end: 20210415
  13. UTAPINE [Concomitant]
     Indication: SEDATIVE THERAPY
     Route: 048
     Dates: start: 20210406, end: 20210421
  14. HALF SALINE [Concomitant]
     Indication: PRODUCT USED FOR UNKNOWN INDICATION
     Route: 041
     Dates: start: 20210404, end: 20210421
  15. THROUGH [Concomitant]
     Indication: CONSTIPATION PROPHYLAXIS
     Dosage: 2 TABLETS
     Route: 048
     Dates: start: 20210402, end: 20210421

REACTIONS (4)
  - Hypernatraemia [Unknown]
  - Urine output decreased [Unknown]
  - Pyuria [Unknown]
  - Pneumonia aspiration [Recovered/Resolved]

NARRATIVE: CASE EVENT DATE: 20210402
